FAERS Safety Report 19488578 (Version 2)
Quarter: 2021Q3

REPORT INFORMATION
  Report Type: Report from Study
  Country: PA (occurrence: PA)
  Receive Date: 20210702
  Receipt Date: 20210722
  Transmission Date: 20211014
  Serious: Yes (Other)
  Sender: FDA-Public Use
  Company Number: NVSC2021PA144331

PATIENT
  Age: 33 Year
  Sex: Female

DRUGS (2)
  1. GILENYA [Suspect]
     Active Substance: FINGOLIMOD HYDROCHLORIDE
     Indication: MULTIPLE SCLEROSIS
     Dosage: 0.5 MG, QD
     Route: 048
     Dates: start: 20180328
  2. GILENYA [Suspect]
     Active Substance: FINGOLIMOD HYDROCHLORIDE
     Dosage: 0.5 MG
     Route: 048
     Dates: start: 2019

REACTIONS (4)
  - Anxiety [Recovering/Resolving]
  - Hypertension [Not Recovered/Not Resolved]
  - Feeling abnormal [Recovering/Resolving]
  - Poor quality sleep [Unknown]

NARRATIVE: CASE EVENT DATE: 20210621
